FAERS Safety Report 4426708-X (Version None)
Quarter: 2004Q3

REPORT INFORMATION
  Report Type: 
  Country: None (occurrence: None)
  Receive Date: 20040812
  Receipt Date: 20040812
  Transmission Date: 20050211
  Serious: Yes (Life-Threatening)
  Sender: FDA-Public Use
  Company Number: None

PATIENT
  Age: 46 Year
  Sex: Male
  Weight: 81.6475 kg

DRUGS (7)
  1. BEXTRA [Suspect]
     Indication: ARTHRITIS
     Dosage: 1 EACH DAY ORAL
     Route: 048
     Dates: start: 20040401, end: 20040805
  2. PREDNISONE [Concomitant]
  3. ANTIHISTEMINE [Concomitant]
  4. EPINEPHRENE [Concomitant]
  5. STEROIDS [Concomitant]
  6. BENEDRYL [Concomitant]
  7. TAGAMET [Concomitant]

REACTIONS (10)
  - AURICULAR SWELLING [None]
  - DYSPHAGIA [None]
  - EYE SWELLING [None]
  - FATIGUE [None]
  - OEDEMA GENITAL [None]
  - OEDEMA PERIPHERAL [None]
  - RASH GENERALISED [None]
  - RASH PRURITIC [None]
  - TESTICULAR SWELLING [None]
  - URTICARIA [None]
